FAERS Safety Report 10005492 (Version 3)
Quarter: 2014Q2

REPORT INFORMATION
  Report Type: Spontaneous
  Country: US (occurrence: US)
  Receive Date: 20140313
  Receipt Date: 20140424
  Transmission Date: 20141212
  Serious: Yes (Other)
  Sender: FDA-Public Use
  Company Number: US-ROCHE-1321748

PATIENT
  Age: 80 Year
  Sex: Female

DRUGS (7)
  1. ERIVEDGE [Suspect]
     Indication: PRODUCT USED FOR UNKNOWN INDICATION
     Route: 048
     Dates: start: 20131206
  2. AMLODIPINE [Concomitant]
  3. BACLOFEN [Concomitant]
  4. SYMBICORT [Concomitant]
  5. TRAZODONE [Concomitant]
  6. ACETAMINOPHEN [Concomitant]
  7. VITAMIN B6 [Concomitant]

REACTIONS (7)
  - Cough [Not Recovered/Not Resolved]
  - Sputum abnormal [Not Recovered/Not Resolved]
  - Ageusia [Not Recovered/Not Resolved]
  - Neuropathy peripheral [Not Recovered/Not Resolved]
  - Atrophic glossitis [Unknown]
  - Alopecia [Not Recovered/Not Resolved]
  - Muscle spasms [Not Recovered/Not Resolved]
